FAERS Safety Report 23296585 (Version 1)
Quarter: 2023Q4

REPORT INFORMATION
  Report Type: Spontaneous
  Country: US (occurrence: US)
  Receive Date: 20231214
  Receipt Date: 20231214
  Transmission Date: 20240110
  Serious: Yes (Other)
  Sender: FDA-Public Use
  Company Number: US-ELI_LILLY_AND_COMPANY-US202312001847

PATIENT
  Age: 26 Year
  Sex: Female

DRUGS (1)
  1. MOUNJARO [Suspect]
     Active Substance: TIRZEPATIDE
     Indication: Type 2 diabetes mellitus
     Dosage: UNK UNK, UNKNOWN
     Route: 065
     Dates: start: 202212, end: 202304

REACTIONS (9)
  - Injury [Unknown]
  - Impaired gastric emptying [Unknown]
  - Pain [Unknown]
  - Anxiety [Unknown]
  - Depressed mood [Unknown]
  - Fear [Unknown]
  - Vomiting [Unknown]
  - Abdominal pain upper [Unknown]
  - Dyspepsia [Unknown]
